FAERS Safety Report 6199135-5 (Version None)
Quarter: 2009Q2

REPORT INFORMATION
  Report Type: 
  Country: None (occurrence: None)
  Receive Date: 20090522
  Receipt Date: 20090511
  Transmission Date: 20091009
  Serious: Yes (Other)
  Sender: FDA-Public Use
  Company Number: TR-ROCHE-632477

PATIENT
  Age: 38 Year
  Sex: Male

DRUGS (3)
  1. PEG-INTERFERON A-2A (RO 25-8310) [Suspect]
     Route: 065
  2. RIBAVIRIN [Suspect]
     Route: 065
  3. RIBAVIRIN [Suspect]
     Route: 065

REACTIONS (2)
  - ANAEMIA [None]
  - MIGRAINE [None]
